FAERS Safety Report 9661627 (Version 2)
Quarter: 2013Q4

REPORT INFORMATION
  Report Type: Spontaneous
  Country: US (occurrence: US)
  Receive Date: 20131031
  Receipt Date: 20131031
  Transmission Date: 20140711
  Serious: No
  Sender: FDA-Public Use
  Company Number: US-PURDUE-USA-2010-0055426

PATIENT
  Sex: Male

DRUGS (3)
  1. OXYCONTIN (NDA 22-272) [Suspect]
     Indication: BACK PAIN
     Dosage: 20 MG, AM
     Route: 048
     Dates: start: 20101014
  2. OXYCONTIN (NDA 22-272) [Suspect]
     Dosage: 20 MG, PM
     Route: 048
  3. PERCOCET-5 [Concomitant]
     Indication: BREAKTHROUGH PAIN
     Dosage: 5/325 MG, BID
     Route: 048

REACTIONS (4)
  - Medication residue present [Unknown]
  - Product quality issue [Unknown]
  - Intentional drug misuse [Unknown]
  - Drug ineffective [Recovered/Resolved]
